FAERS Safety Report 6591243-X (Version None)
Quarter: 2010Q1

REPORT INFORMATION
  Report Type: 
  Country: None (occurrence: None)
  Receive Date: 20100219
  Receipt Date: 20100208
  Transmission Date: 20100710
  Serious: Yes (Other)
  Sender: FDA-Public Use
  Company Number: GR-ASTRAZENECA-2010SE05920

PATIENT
  Age: 34 Year
  Sex: Female
  Weight: 60 kg

DRUGS (2)
  1. NEXIUM IV [Suspect]
     Indication: ABDOMINAL PAIN UPPER
     Route: 042
     Dates: start: 20100208, end: 20100208
  2. ASSOPROL [Concomitant]
     Indication: ABDOMINAL PAIN UPPER
     Route: 048
     Dates: start: 20100204, end: 20100208

REACTIONS (2)
  - ERYTHEMA [None]
  - SKIN BURNING SENSATION [None]
